FAERS Safety Report 15718132 (Version 1)
Quarter: 2018Q4

REPORT INFORMATION
  Report Type: Spontaneous
  Country: US (occurrence: US)
  Receive Date: 20181213
  Receipt Date: 20181213
  Transmission Date: 20190205
  Serious: No
  Sender: FDA-Public Use
  Company Number: US-ASTRAZENECA-2018SF62282

PATIENT

DRUGS (1)
  1. PRILOSEC OTC [Suspect]
     Active Substance: OMEPRAZOLE MAGNESIUM
     Dosage: UNK UNKNOWN
     Route: 048
     Dates: start: 20180219

REACTIONS (1)
  - Foreign body in respiratory tract [Recovering/Resolving]

NARRATIVE: CASE EVENT DATE: 20180219
